FAERS Safety Report 24287997 (Version 1)
Quarter: 2024Q3

REPORT INFORMATION
  Report Type: Spontaneous
  Country: CN (occurrence: CN)
  Receive Date: 20240905
  Receipt Date: 20240905
  Transmission Date: 20241017
  Serious: Yes (Other)
  Sender: PURDUE
  Company Number: CN-NAPPMUNDI-GBR-2024-0119338

PATIENT
  Age: 75 Year
  Sex: Male
  Weight: 60 kg

DRUGS (6)
  1. MS CONTIN [Suspect]
     Active Substance: MORPHINE SULFATE
     Indication: Chronic obstructive pulmonary disease
     Dosage: 10 MILLIGRAM, DAILY ONCE
     Route: 048
     Dates: start: 20240821, end: 20240822
  2. MS CONTIN [Suspect]
     Active Substance: MORPHINE SULFATE
     Indication: Metastases to pancreas
  3. MS CONTIN [Suspect]
     Active Substance: MORPHINE SULFATE
     Indication: Pancreatic carcinoma
  4. MORPHINE HYDROCHLORIDE [Suspect]
     Active Substance: MORPHINE HYDROCHLORIDE
     Indication: Chronic obstructive pulmonary disease
     Dosage: 10 MILLIGRAM, DAILY ONCE
     Route: 058
     Dates: start: 20240821, end: 20240821
  5. MORPHINE HYDROCHLORIDE [Suspect]
     Active Substance: MORPHINE HYDROCHLORIDE
     Indication: Metastases to pancreas
  6. MORPHINE HYDROCHLORIDE [Suspect]
     Active Substance: MORPHINE HYDROCHLORIDE
     Indication: Pancreatic carcinoma

REACTIONS (4)
  - Respiratory failure [Recovering/Resolving]
  - Altered state of consciousness [Unknown]
  - Musculoskeletal pain [Unknown]
  - Inappropriate schedule of product administration [Unknown]

NARRATIVE: CASE EVENT DATE: 20240821
